FAERS Safety Report 6539845-0 (Version None)
Quarter: 2010Q1

REPORT INFORMATION
  Report Type: 
  Country: None (occurrence: None)
  Receive Date: 20100115
  Receipt Date: 20100112
  Transmission Date: 20100710
  Serious: Yes (Life-Threatening)
  Sender: FDA-Public Use
  Company Number: US-ROCHE-679602

PATIENT
  Age: 53 Year
  Sex: Female
  Weight: 63.2 kg

DRUGS (1)
  1. BEVACIZUMAB [Suspect]
     Indication: OVARIAN CANCER
     Route: 042
     Dates: start: 20090129

REACTIONS (1)
  - SMALL INTESTINAL OBSTRUCTION [None]
